FAERS Safety Report 13967353 (Version 1)
Quarter: 2017Q3

REPORT INFORMATION
  Report Type: Spontaneous
  Country: US (occurrence: None)
  Receive Date: 20170914
  Receipt Date: 20170914
  Transmission Date: 20171128
  Serious: No
  Sender: FDA-Public Use
  Company Number: None

PATIENT
  Age: 15 Year
  Sex: Female
  Weight: 53.2 kg

DRUGS (3)
  1. FLUDARABINE PHOSPHATE. [Suspect]
     Active Substance: FLUDARABINE PHOSPHATE
     Dates: end: 20170912
  2. G-CSF (FIGRASTIM AMGEN) [Suspect]
     Active Substance: FILGRASTIM
     Dates: end: 20170912
  3. CYTARABINE. [Suspect]
     Active Substance: CYTARABINE
     Dates: end: 20170912

REACTIONS (1)
  - Lymphopenia [None]

NARRATIVE: CASE EVENT DATE: 20170913
